FAERS Safety Report 4367064-5 (Version None)
Quarter: 2004Q2

REPORT INFORMATION
  Report Type: 
  Country: None (occurrence: None)
  Receive Date: 20040524
  Receipt Date: 20040517
  Transmission Date: 20050107
  Serious: Yes (Death, Other)
  Sender: FDA-Public Use
  Company Number: 2004-04-0614

PATIENT
  Age: 62 Year
  Sex: Female

DRUGS (2)
  1. PEG-INTRON [Suspect]
     Indication: HEPATITIS C
     Dosage: SUBCUTANEOUS
     Route: 058
     Dates: start: 20040324, end: 20040414
  2. REBETOL [Suspect]
     Indication: HEPATITIS C
     Dosage: ORAL
     Route: 048
     Dates: start: 20040324, end: 20040414

REACTIONS (6)
  - MUSCLE CRAMP [None]
  - RENAL FAILURE [None]
  - RHABDOMYOLYSIS [None]
  - RHEUMATOID ARTHRITIS [None]
  - SEPSIS [None]
  - SWELLING [None]
